FAERS Safety Report 14946147 (Version 2)
Quarter: 2018Q2

REPORT INFORMATION
  Report Type: Report from Study
  Country: US (occurrence: US)
  Receive Date: 20180529
  Receipt Date: 20180614
  Transmission Date: 20180711
  Serious: Yes (Other)
  Sender: FDA-Public Use
  Company Number: US-ASTELLAS-2018US024526

PATIENT

DRUGS (3)
  1. DOCETAXEL. [Suspect]
     Active Substance: DOCETAXEL
     Indication: METASTATIC SQUAMOUS CELL CARCINOMA
     Dosage: 60-75 MG/M2, ONCE DAILY
     Route: 042
  2. ERLOTINIB [Suspect]
     Active Substance: ERLOTINIB
     Indication: PRODUCT USED FOR UNKNOWN INDICATION
     Dosage: UNK, UNKNOWN FREQ.
     Route: 065
  3. CISPLATIN. [Suspect]
     Active Substance: CISPLATIN
     Indication: METASTATIC SQUAMOUS CELL CARCINOMA
     Dosage: 9MG/M2, ONCE DAILY
     Route: 042

REACTIONS (21)
  - Hypocalcaemia [Unknown]
  - Stomatitis [Unknown]
  - Haemoglobin abnormal [Unknown]
  - Febrile neutropenia [Unknown]
  - Hypomagnesaemia [Unknown]
  - Oedema peripheral [Unknown]
  - Neutrophil count abnormal [Unknown]
  - Hypotension [Unknown]
  - Hyponatraemia [Unknown]
  - Hypokalaemia [Unknown]
  - Vomiting [Unknown]
  - Diarrhoea [Unknown]
  - Platelet count abnormal [Unknown]
  - Nausea [Unknown]
  - Dehydration [Unknown]
  - Blood alkaline phosphatase abnormal [Unknown]
  - Dermatitis acneiform [Unknown]
  - Mucosal inflammation [Unknown]
  - Hyperbilirubinaemia [Unknown]
  - Infection [Unknown]
  - Fatigue [Unknown]
